FAERS Safety Report 9506238 (Version 1)
Quarter: 2013Q1

REPORT INFORMATION
  Report Type: Spontaneous
  Country: US (occurrence: None)
  Receive Date: 20130301
  Receipt Date: 20130301
  Transmission Date: 20140127
  Serious: Yes (Hospitalization)
  Sender: FDA-Public Use
  Company Number: RB-41259-2012

PATIENT
  Age: 43 Year
  Sex: Female

DRUGS (5)
  1. SUBOXONE (8 MG, 8 MG) [Suspect]
     Indication: DRUG DEPENDENCE
     Dosage: (DAILY DOSE UNKNOWN SUBLINGUAL), (DAILY DOSE UNKNOWN SUBLINGUAL) THERAPY DATES  2010, DEC/2011, (JAN/??/2012 TO 06/??/2012)?
     Route: 060
     Dates: start: 2010
  2. LISINOPRIL [Concomitant]
  3. METOPROLOL [Concomitant]
  4. HYDROCHLOROTHIAZIDE [Concomitant]
  5. KLONOPIN [Concomitant]

REACTIONS (5)
  - Blood pressure increased [None]
  - Condition aggravated [None]
  - Anxiety [None]
  - Myocardial infarction [None]
  - Drug withdrawal syndrome [None]
